FAERS Safety Report 9928732 (Version 1)
Quarter: 2014Q1

REPORT INFORMATION
  Report Type: Spontaneous
  Country: AU (occurrence: None)
  Receive Date: 20140225
  Receipt Date: 20140225
  Transmission Date: 20141002
  Serious: Yes (Disabling)
  Sender: FDA-Public Use
  Company Number: 2191840

PATIENT
  Age: 60 Year
  Sex: Female

DRUGS (4)
  1. CYTARABINE [Suspect]
     Indication: ACUTE MYELOID LEUKAEMIA
     Dosage: NOT REPORTED, CYCLICAL, UNKNOWN
  2. CYTARABINE [Suspect]
     Dosage: NOT REPORTED, CYCLICAL, UNKNOWN
  3. DEXAMETHASONE [Suspect]
     Indication: KERATITIS
     Route: 047
  4. DEXAMETHASONE [Suspect]
     Indication: PROPHYLAXIS
     Route: 047

REACTIONS (7)
  - Ulcerative keratitis [None]
  - Punctate keratitis [None]
  - Keratitis bacterial [None]
  - Haemoglobin decreased [None]
  - Platelet count decreased [None]
  - Corneal infection [None]
  - Toxicity to various agents [None]
